FAERS Safety Report 6969003-7 (Version None)
Quarter: 2010Q3

REPORT INFORMATION
  Report Type: 
  Country: None (occurrence: None)
  Receive Date: 20100903
  Receipt Date: 20100903
  Transmission Date: 20110219
  Serious: Yes (Death)
  Sender: FDA-Public Use
  Company Number: None

PATIENT
  Age: 72 Year
  Sex: Female

DRUGS (12)
  1. REVLIMID [Suspect]
     Indication: MULTIPLE MYELOMA
     Dosage: 10MG DAILY ORALLY
     Route: 048
     Dates: start: 20080201, end: 20090901
  2. FUROSEMIDE [Concomitant]
  3. POTASSIUM CHLORIDE [Concomitant]
  4. METOLAZONE [Concomitant]
  5. INSULIN [Concomitant]
  6. DECADRON [Concomitant]
  7. MIDODRINE HYDROCHLORIDE [Concomitant]
  8. LISINOPRIL [Concomitant]
  9. COLACE [Concomitant]
  10. M.V.I. [Concomitant]
  11. LEVOTHROID [Concomitant]
  12. OMEPRAZOLE [Concomitant]

REACTIONS (1)
  - PNEUMONIA [None]
